FAERS Safety Report 10172850 (Version 1)
Quarter: 2014Q2

REPORT INFORMATION
  Report Type: Spontaneous
  Country: GB (occurrence: GB)
  Receive Date: 20140515
  Receipt Date: 20140515
  Transmission Date: 20141212
  Serious: Yes (Other)
  Sender: FDA-Public Use
  Company Number: GB-GLAXOSMITHKLINE-B0991093A

PATIENT
  Sex: Female

DRUGS (4)
  1. SERETIDE [Suspect]
     Dosage: 4IUAX PER DAY
     Route: 055
  2. FUROSEMIDE [Concomitant]
  3. AMITRIPTYLINE [Concomitant]
  4. INHALERS [Concomitant]

REACTIONS (1)
  - Dyspnoea [Recovered/Resolved]
